FAERS Safety Report 8387231-3 (Version None)
Quarter: 2012Q2

REPORT INFORMATION
  Report Type: 
  Country: None (occurrence: None)
  Receive Date: 20120525
  Receipt Date: 20120516
  Transmission Date: 20120825
  Serious: Yes (Hospitalization)
  Sender: FDA-Public Use
  Company Number: DE-ROCHE-1059491

PATIENT
  Age: 52 Year
  Sex: Female
  Weight: 67 kg

DRUGS (7)
  1. PEGASYS [Suspect]
     Dosage: DOSE REDUCED
  2. COPEGUS [Suspect]
     Dosage: DOSE REDUCED
  3. TORSEMIDE [Concomitant]
     Indication: POLYURIA
     Route: 048
     Dates: start: 20120328
  4. PEGASYS [Suspect]
     Indication: HEPATITIS C
     Route: 058
     Dates: start: 20120104
  5. COPEGUS [Suspect]
     Indication: HEPATITIS C
     Route: 048
     Dates: start: 20120104
  6. PANTOPRAZOLE [Concomitant]
     Indication: PROPHYLAXIS
     Route: 048
     Dates: start: 20120328
  7. SPIRONOLACTONE [Concomitant]
     Route: 048
     Dates: start: 20120328

REACTIONS (3)
  - HEPATIC FAILURE [None]
  - ASCITES [None]
  - PLEURAL EFFUSION [None]
